FAERS Safety Report 4745670-3 (Version None)
Quarter: 2005Q3

REPORT INFORMATION
  Report Type: 
  Country: None (occurrence: None)
  Receive Date: 20050811
  Receipt Date: 20050804
  Transmission Date: 20060218
  Serious: Yes (Death)
  Sender: FDA-Public Use
  Company Number: 2005111638

PATIENT
  Age: 40 Year
  Sex: Male

DRUGS (1)
  1. NEURONTIN [Suspect]
     Indication: MYALGIA
     Dosage: 2400 MG (800 MG , 3 IN 1 D), ORAL
     Route: 048

REACTIONS (6)
  - COMPLETED SUICIDE [None]
  - GUN SHOT WOUND [None]
  - HEAD INJURY [None]
  - INTENTIONAL SELF-INJURY [None]
  - PERSONALITY CHANGE [None]
  - SOCIAL AVOIDANT BEHAVIOUR [None]
